FAERS Safety Report 23487805 (Version 1)
Quarter: 2024Q1

REPORT INFORMATION
  Report Type: Spontaneous
  Country: US (occurrence: US)
  Receive Date: 20240206
  Receipt Date: 20240206
  Transmission Date: 20240409
  Serious: No
  Sender: FDA-Public Use
  Company Number: US-JNJFOC-20240120921

PATIENT
  Age: 8 Decade
  Sex: Female
  Weight: 83.082 kg

DRUGS (3)
  1. TREMFYA [Suspect]
     Active Substance: GUSELKUMAB
     Indication: Pityriasis rubra pilaris
     Route: 065
     Dates: start: 202303
  2. TREMFYA [Suspect]
     Active Substance: GUSELKUMAB
  3. TREMFYA [Suspect]
     Active Substance: GUSELKUMAB

REACTIONS (7)
  - Off label use [Unknown]
  - Skin exfoliation [Unknown]
  - Burning sensation [Unknown]
  - Pruritus [Unknown]
  - Irritability [Unknown]
  - Drug ineffective [Unknown]
  - Pityriasis rubra pilaris [Unknown]
